FAERS Safety Report 10008049 (Version 3)
Quarter: 2014Q1

REPORT INFORMATION
  Report Type: Spontaneous
  Country: IT (occurrence: IT)
  Receive Date: 20140313
  Receipt Date: 20140326
  Transmission Date: 20141002
  Serious: Yes (Hospitalization)
  Sender: FDA-Public Use
  Company Number: PHHY2014IT030531

PATIENT
  Age: 85 Year
  Sex: Male

DRUGS (8)
  1. GABAPENTIN [Suspect]
     Indication: SEDATION
     Dosage: 200 MG, ONCE/SINGLE
     Route: 048
     Dates: start: 20140205, end: 20140205
  2. GABAPENTIN [Suspect]
     Indication: OFF LABEL USE
  3. ALPRAZOLAM [Suspect]
     Indication: SEDATION
     Dosage: 40 DRP, ONCE/SINGLE
     Route: 048
     Dates: start: 20140205
  4. ALPRAZOLAM [Suspect]
     Indication: OFF LABEL USE
  5. SEROQUEL [Suspect]
     Indication: SEDATION
     Dosage: 25 MG, QD
     Route: 048
     Dates: start: 20140204
  6. SEROQUEL [Suspect]
     Indication: OFF LABEL USE
  7. LOBIVON [Concomitant]
     Dosage: 5 MG, UNK
  8. MADOPAR [Concomitant]
     Dosage: UNK (100 MG+25 MG)

REACTIONS (3)
  - Erythema [Recovering/Resolving]
  - Somnolence [Recovering/Resolving]
  - Off label use [Recovering/Resolving]
